FAERS Safety Report 5845178-8 (Version None)
Quarter: 2008Q3

REPORT INFORMATION
  Report Type: 
  Country: None (occurrence: None)
  Receive Date: 20080814
  Receipt Date: 20080808
  Transmission Date: 20090109
  Serious: Yes (Other)
  Sender: FDA-Public Use
  Company Number: PHEH2008US06982

PATIENT
  Sex: Male

DRUGS (1)
  1. TEKTURNA [Suspect]
     Dosage: UNK
     Dates: start: 20080301

REACTIONS (3)
  - BLOOD PRESSURE INCREASED [None]
  - RENAL ARTERY STENT PLACEMENT [None]
  - VASOCONSTRICTION [None]
